FAERS Safety Report 8318636-4 (Version None)
Quarter: 2012Q2

REPORT INFORMATION
  Report Type: 
  Country: None (occurrence: None)
  Receive Date: 20120427
  Receipt Date: 20091113
  Transmission Date: 20120825
  Serious: No
  Sender: FDA-Public Use
  Company Number: US-TEVA-2009009586

PATIENT
  Sex: Female
  Weight: 72.64 kg

DRUGS (11)
  1. NUVIGIL [Suspect]
     Indication: HYPERSOMNIA
     Dosage: 250 MILLIGRAM;
     Route: 048
     Dates: start: 20090717
  2. ALLEGRA [Concomitant]
  3. HYDROCHLOROTHIAZIDE [Concomitant]
  4. ALBUTEROL [Concomitant]
  5. PROTONIX [Concomitant]
  6. NAPROXEN (ALEVE) [Concomitant]
  7. ATIVAN [Concomitant]
  8. XYREM [Concomitant]
  9. PRISTIQ [Concomitant]
  10. IBUPROFEN [Concomitant]
  11. RITALIN [Concomitant]

REACTIONS (8)
  - EXCORIATION [None]
  - WOUND INFECTION STAPHYLOCOCCAL [None]
  - BACTERIAL DISEASE CARRIER [None]
  - NEURODERMATITIS [None]
  - FOLLICULITIS [None]
  - PARAESTHESIA [None]
  - NAUSEA [None]
  - DIZZINESS [None]
